FAERS Safety Report 4854270-6 (Version None)
Quarter: 2005Q4

REPORT INFORMATION
  Report Type: 
  Country: None (occurrence: None)
  Receive Date: 20051215
  Receipt Date: 20051206
  Transmission Date: 20060501
  Serious: Yes (Death, Hospitalization)
  Sender: FDA-Public Use
  Company Number: BE-JNJFOC-20051201359

PATIENT
  Age: 67 Year
  Sex: Female

DRUGS (2)
  1. INFLIXIMAB [Suspect]
     Dosage: 3 INFUSIONS
     Route: 042
  2. IMURAN [Concomitant]
     Route: 065

REACTIONS (1)
  - LISTERIA ENCEPHALITIS [None]
